FAERS Safety Report 4546426-7 (Version None)
Quarter: 2005Q1

REPORT INFORMATION
  Report Type: 
  Country: None (occurrence: None)
  Receive Date: 20050105
  Receipt Date: 20041221
  Transmission Date: 20050727
  Serious: Yes (Death, Hospitalization)
  Sender: FDA-Public Use
  Company Number: 2004AL000592

PATIENT
  Age: 57 Year
  Sex: Female

DRUGS (2)
  1. ACETAMINOPHEN [Suspect]
     Dosage: PO
     Route: 048
  2. ACETAMINOPHEN [Suspect]
     Dosage: PO
     Route: 048

REACTIONS (11)
  - ASTERIXIS [None]
  - BLOOD PH DECREASED [None]
  - ENCEPHALOPATHY [None]
  - HEPATIC FAILURE [None]
  - INTENTIONAL MISUSE [None]
  - INTERNATIONAL NORMALISED RATIO INCREASED [None]
  - MENTAL IMPAIRMENT [None]
  - MULTI-ORGAN FAILURE [None]
  - PROTHROMBIN TIME PROLONGED [None]
  - PULMONARY HYPERTENSION [None]
  - RENAL FAILURE [None]
